FAERS Safety Report 5488379-3 (Version None)
Quarter: 2007Q4

REPORT INFORMATION
  Report Type: 
  Country: None (occurrence: None)
  Receive Date: 20071017
  Receipt Date: 20071012
  Transmission Date: 20080405
  Serious: Yes (Hospitalization)
  Sender: FDA-Public Use
  Company Number: B0491463A

PATIENT
  Age: 32 Year
  Sex: Female
  Weight: 68 kg

DRUGS (2)
  1. PAROXETINE [Suspect]
     Indication: FATIGUE
     Route: 048
     Dates: start: 20060807
  2. ORAL CONTRACEPTION [Concomitant]
     Route: 048

REACTIONS (8)
  - ABNORMAL DREAMS [None]
  - DIZZINESS [None]
  - FATIGUE [None]
  - HAEMATOMA [None]
  - INCREASED TENDENCY TO BRUISE [None]
  - INSOMNIA [None]
  - PARAESTHESIA [None]
  - RESTLESSNESS [None]
